FAERS Safety Report 4865124-3 (Version None)
Quarter: 2005Q4

REPORT INFORMATION
  Report Type: 
  Country: None (occurrence: None)
  Receive Date: 20051221
  Receipt Date: 20051221
  Transmission Date: 20060501
  Serious: Yes (Hospitalization)
  Sender: FDA-Public Use
  Company Number: None

PATIENT
  Sex: Male

DRUGS (6)
  1. RITUXIMAB [Suspect]
     Indication: DIFFUSE LARGE B-CELL LYMPHOMA
  2. VELCADE [Suspect]
     Indication: DIFFUSE LARGE B-CELL LYMPHOMA
     Dosage: 1.3MG/M2 IV DRIP
     Route: 042
  3. CYTOXAN [Suspect]
     Indication: DIFFUSE LARGE B-CELL LYMPHOMA
  4. DOXORUBICIN HCL [Suspect]
     Indication: DIFFUSE LARGE B-CELL LYMPHOMA
  5. VINCRISTINE [Suspect]
     Indication: DIFFUSE LARGE B-CELL LYMPHOMA
  6. PREDNISONE [Suspect]
     Indication: DIFFUSE LARGE B-CELL LYMPHOMA

REACTIONS (3)
  - HEPATIC NEOPLASM [None]
  - OEDEMA PERIPHERAL [None]
  - THROMBOCYTOPENIA [None]
